FAERS Safety Report 6259681-2 (Version None)
Quarter: 2009Q3

REPORT INFORMATION
  Report Type: 
  Country: None (occurrence: None)
  Receive Date: 20090708
  Receipt Date: 20090706
  Transmission Date: 20100115
  Serious: Yes (Other)
  Sender: FDA-Public Use
  Company Number: US-SP-2009-01928

PATIENT
  Age: 57 Year
  Sex: Female

DRUGS (5)
  1. ADACEL [Suspect]
     Indication: IMMUNISATION
     Route: 030
     Dates: start: 20090421
  2. ADACEL [Suspect]
     Route: 030
     Dates: start: 20090421
  3. TUBERSOL [Suspect]
     Indication: TUBERCULIN TEST
     Route: 023
     Dates: start: 20090421
  4. TUBERSOL [Suspect]
     Route: 023
     Dates: start: 20090421
  5. TOPROL-XL [Suspect]

REACTIONS (5)
  - DYSPHONIA [None]
  - HYPERSENSITIVITY [None]
  - LOCAL SWELLING [None]
  - PAIN IN EXTREMITY [None]
  - PHARYNGEAL OEDEMA [None]
